FAERS Safety Report 9556653 (Version 1)
Quarter: 2013Q3

REPORT INFORMATION
  Report Type: Spontaneous
  Country: US (occurrence: None)
  Receive Date: 20130909
  Receipt Date: 20130909
  Transmission Date: 20140515
  Serious: Yes (Other)
  Sender: FDA-Public Use
  Company Number: 372778

PATIENT
  Age: 56 Year
  Sex: Female
  Weight: 125.6 kg

DRUGS (7)
  1. VICTOZA (LIRAGLUTIDE) SOLUTION FOR INJECTION, 6MG/ML [Suspect]
     Indication: TYPE 2 DIABETES MELLITUS
     Route: 058
     Dates: start: 20120605, end: 201212
  2. LEVEMIR FLEXPEN (INSULIN DETEMIR) [Concomitant]
  3. HUMALOG (INSULIN LISPRO) [Concomitant]
  4. ATACAND (CANDESARTAN CILEXETIL) [Concomitant]
  5. TRIAMTERENE AND HYDROCHLOROTHIAZIDE (HYDROCHLOROTHIAZIDE, TRIAMTERENE) [Concomitant]
  6. NEURONTIN (GABAPENTIN) [Concomitant]
  7. FLEXERIL /00428402/ (CYCLOBENZAPRINE HYDROCHLORIDE) [Concomitant]

REACTIONS (1)
  - Pancreatitis [None]
